FAERS Safety Report 10073061 (Version 1)
Quarter: 2014Q2

REPORT INFORMATION
  Report Type: Spontaneous
  Country: GB (occurrence: GB)
  Receive Date: 20140411
  Receipt Date: 20140411
  Transmission Date: 20141212
  Serious: Yes (Other)
  Sender: FDA-Public Use
  Company Number: GB-WATSON-2014-06845

PATIENT
  Age: 16 Year
  Sex: Male
  Weight: 78 kg

DRUGS (1)
  1. RISPERIDONE (UNKNOWN) [Suspect]
     Indication: SCHIZOPHRENIA
     Dosage: 1 MG, QHS; AT NIGHT
     Route: 065
     Dates: start: 20120701, end: 20130101

REACTIONS (2)
  - Diabetes mellitus [Not Recovered/Not Resolved]
  - Weight increased [Unknown]
